FAERS Safety Report 11075491 (Version 2)
Quarter: 2015Q2

REPORT INFORMATION
  Report Type: Spontaneous
  Country: IT (occurrence: IT)
  Receive Date: 20150429
  Receipt Date: 20150515
  Transmission Date: 20150821
  Serious: Yes (Other)
  Sender: FDA-Public Use
  Company Number: IT-ABBVIE-15P-083-1382999-00

PATIENT
  Age: 32 Year
  Sex: Female

DRUGS (2)
  1. MACLADIN [Suspect]
     Active Substance: CLARITHROMYCIN
     Indication: SINUSITIS
     Route: 048
     Dates: start: 20150313, end: 20150313
  2. DEFLAN [Concomitant]
     Active Substance: DEFLAZACORT
     Indication: ACUTE SINUSITIS
     Dates: start: 20150313, end: 20150313

REACTIONS (2)
  - Paraesthesia oral [Recovered/Resolved]
  - Feeling hot [Recovered/Resolved]

NARRATIVE: CASE EVENT DATE: 20150313
